FAERS Safety Report 10210812 (Version 1)
Quarter: 2014Q2

REPORT INFORMATION
  Report Type: Spontaneous
  Country: US (occurrence: US)
  Receive Date: 20140602
  Receipt Date: 20140602
  Transmission Date: 20141212
  Serious: Yes (Hospitalization)
  Sender: FDA-Public Use
  Company Number: US-MYLANLABS-2014S1012063

PATIENT
  Age: 62 Year
  Sex: Male

DRUGS (5)
  1. AMIODARONE [Suspect]
     Indication: ATRIAL FIBRILLATION
     Route: 065
  2. ASPIRIN [Concomitant]
     Dosage: 325MG DAILY
     Route: 065
  3. FUROSEMIDE [Concomitant]
     Route: 065
  4. LISINOPRIL [Concomitant]
     Dosage: 20MG DAILY
     Route: 065
  5. METOPROLOL [Concomitant]
     Route: 065

REACTIONS (2)
  - Myxoedema coma [Recovered/Resolved]
  - Respiratory failure [Unknown]
